FAERS Safety Report 5124712-X (Version None)
Quarter: 2006Q4

REPORT INFORMATION
  Report Type: 
  Country: None (occurrence: None)
  Receive Date: 20061006
  Receipt Date: 20060920
  Transmission Date: 20070319
  Serious: Yes (Hospitalization)
  Sender: FDA-Public Use
  Company Number: REM_00250_2006

PATIENT
  Age: 25 Year
  Sex: Female

DRUGS (6)
  1. REMODULIN [Suspect]
     Indication: PULMONARY HYPERTENSION
     Dosage: 85 NG/KG/MIN IV
     Route: 042
     Dates: start: 20050913
  2. BOSENTAN [Concomitant]
  3. WARFARIN SODIUM [Concomitant]
  4. FUROSEMIDE [Concomitant]
  5. SPIRONOLACTONE [Concomitant]
  6. POTASSIUM CHLORIDE [Concomitant]

REACTIONS (3)
  - CATHETER SEPSIS [None]
  - CATHETER SITE INFECTION [None]
  - STAPHYLOCOCCAL INFECTION [None]
